FAERS Safety Report 9311590 (Version 1)
Quarter: 2013Q2

REPORT INFORMATION
  Report Type: Report from Study
  Country: BE (occurrence: BE)
  Receive Date: 20130528
  Receipt Date: 20130528
  Transmission Date: 20140414
  Serious: Yes (Other)
  Sender: FDA-Public Use
  Company Number: BE-BAYER-2013-057093

PATIENT
  Age: 75 Year
  Sex: Female

DRUGS (1)
  1. NEXAVAR [Suspect]
     Indication: THYROID CANCER
     Dosage: 800 MG, UNK
     Dates: start: 20130212, end: 20130516

REACTIONS (8)
  - Thyroid cancer [None]
  - Weight decreased [None]
  - Diarrhoea [None]
  - Decreased appetite [None]
  - Arthritis [None]
  - Cystitis [None]
  - Arrhythmia [None]
  - Off label use [None]
